FAERS Safety Report 9713255 (Version 2)
Quarter: 2013Q4

REPORT INFORMATION
  Report Type: Spontaneous
  Country: US (occurrence: US)
  Receive Date: 20131126
  Receipt Date: 20131126
  Transmission Date: 20140711
  Serious: No
  Sender: FDA-Public Use
  Company Number: US-ASTELLAS-2013US008857

PATIENT
  Age: 73 Year
  Sex: Female

DRUGS (1)
  1. LEXISCAN [Suspect]
     Indication: CARDIAC STRESS TEST
     Route: 042
     Dates: start: 20130815, end: 20130815

REACTIONS (4)
  - Injection site extravasation [Recovered/Resolved]
  - Headache [Recovered/Resolved]
  - Feeling hot [Unknown]
  - Flushing [Unknown]
